FAERS Safety Report 10144062 (Version 1)
Quarter: 2014Q2

REPORT INFORMATION
  Report Type: Spontaneous
  Country: AR (occurrence: AR)
  Receive Date: 20140430
  Receipt Date: 20140430
  Transmission Date: 20141212
  Serious: Yes (Death)
  Sender: FDA-Public Use
  Company Number: AR-PFIZER INC-2014116348

PATIENT
  Sex: Male

DRUGS (1)
  1. XALKORI [Suspect]

REACTIONS (2)
  - Pneumonia [Fatal]
  - General physical health deterioration [Fatal]
